FAERS Safety Report 6822629-3 (Version None)
Quarter: 2010Q3

REPORT INFORMATION
  Report Type: 
  Country: None (occurrence: None)
  Receive Date: 20100706
  Receipt Date: 20100706
  Transmission Date: 20110219
  Serious: Yes (Other)
  Sender: FDA-Public Use
  Company Number: None

PATIENT
  Age: 67 Year
  Sex: Male
  Weight: 129.2752 kg

DRUGS (4)
  1. HYDRALAZINE HCL [Suspect]
     Indication: HYPERTENSION
     Dosage: ONE TABLET 3X A DAY PO
     Route: 048
     Dates: start: 20100303, end: 20100705
  2. ISOSORBIDE DINITRATE [Concomitant]
  3. CARVEDILOL [Concomitant]
  4. SPIRONOLACTONE [Concomitant]

REACTIONS (7)
  - ARTHRALGIA [None]
  - HEART RATE INCREASED [None]
  - HYPOAESTHESIA [None]
  - JOINT SWELLING [None]
  - MYALGIA [None]
  - OEDEMA PERIPHERAL [None]
  - PARAESTHESIA [None]
